FAERS Safety Report 5099457-5 (Version None)
Quarter: 2006Q3

REPORT INFORMATION
  Report Type: 
  Country: None (occurrence: None)
  Receive Date: 20060908
  Receipt Date: 20060831
  Transmission Date: 20061208
  Serious: Yes (Other)
  Sender: FDA-Public Use
  Company Number: US-JNJFOC-20060900276

PATIENT
  Sex: Male

DRUGS (14)
  1. REMICADE [Suspect]
     Indication: RHEUMATOID ARTHRITIS
     Route: 042
     Dates: start: 20001202, end: 20050501
  2. ASPIRIN [Concomitant]
  3. CELEBREX [Concomitant]
  4. COREG [Concomitant]
  5. FOLIC ACID [Concomitant]
  6. LISINOPRIL [Concomitant]
  7. METHOTREXATE [Concomitant]
  8. POTASSIUM [Concomitant]
  9. TYLENOL [Concomitant]
  10. VICODIN [Concomitant]
  11. ZESTRIL [Concomitant]
  12. LIPITOR [Concomitant]
  13. MICARDIS [Concomitant]
  14. NASACORT [Concomitant]

REACTIONS (1)
  - NEOPLASM MALIGNANT [None]
